FAERS Safety Report 20473130 (Version 33)
Quarter: 2022Q4

REPORT INFORMATION
  Report Type: Spontaneous
  Country: GB (occurrence: GB)
  Receive Date: 20220215
  Receipt Date: 20221207
  Transmission Date: 20230113
  Serious: Yes (Other)
  Sender: FDA-Public Use
  Company Number: None

PATIENT
  Sex: Male

DRUGS (76)
  1. MIRTAZAPINE [Suspect]
     Active Substance: MIRTAZAPINE
     Indication: Product used for unknown indication
     Dosage: 30 MILLIGRAM, HS/QD (30 MILLIGRAM, DAILY, ONCE A DAY NIGHT) FORMULATION REPORTED AS FILM COATED TABL
     Route: 048
  2. MIRTAZAPINE [Suspect]
     Active Substance: MIRTAZAPINE
     Dosage: UNK
  3. MIRTAZAPINE [Suspect]
     Active Substance: MIRTAZAPINE
     Dosage: UNK
  4. MIRTAZAPINE [Suspect]
     Active Substance: MIRTAZAPINE
     Dosage: UNK
  5. MIRTAZAPINE [Suspect]
     Active Substance: MIRTAZAPINE
     Dosage: UNK
  6. MIRTAZAPINE [Suspect]
     Active Substance: MIRTAZAPINE
     Dosage: UNK
  7. MIRTAZAPINE [Suspect]
     Active Substance: MIRTAZAPINE
     Dosage: 30 MILLIGRAM, ONCE A DAY, NIGHT
     Route: 048
  8. MIRTAZAPINE [Suspect]
     Active Substance: MIRTAZAPINE
     Dosage: UNK
  9. MIRTAZAPINE [Suspect]
     Active Substance: MIRTAZAPINE
     Dosage: UNK
  10. AZATHIOPRINE [Suspect]
     Active Substance: AZATHIOPRINE
     Indication: Colitis
     Dosage: Q8H WITH OR JUST AFTER FOOD
     Route: 048
  11. AZATHIOPRINE [Suspect]
     Active Substance: AZATHIOPRINE
     Dosage: Q8H, MORNING, LUNCH AND TEA TIME (WITH OR JUST AFTER FOOD/MEAL)/25 MG, DAILY MORNING, LUNCH AND TEA
     Route: 048
  12. AZATHIOPRINE [Suspect]
     Active Substance: AZATHIOPRINE
     Dosage: 75 MILLIGRAM, DAILY,WITH OR JUST AFTER FOOD/ MORNING, LUNCH AND TEA TIME (WITH OR JUST AFTER FOOD/ME
     Route: 048
  13. AZATHIOPRINE [Suspect]
     Active Substance: AZATHIOPRINE
     Dosage: 25 MILLIGRAM, QD MORNING, LUNCH AND TEA TIME (WITH OR JUST AFTER FOOD/MEAL)
     Route: 048
  14. AZATHIOPRINE [Suspect]
     Active Substance: AZATHIOPRINE
     Dosage: 75 MILLIGRAM, DAILY,WITH OR JUST AFTER FOOD/ MORNING, LUNCH AND TEA TIME (WITH OR JUST AFTER FOOD/ME
     Route: 048
  15. AZATHIOPRINE [Suspect]
     Active Substance: AZATHIOPRINE
     Dosage: 25 MILLIGRAM, ONCE A DAY, MORNING, LUNCH AND TEA TIME (WITH OR JUST AFTER FOOD/MEAL)
     Route: 048
  16. AZATHIOPRINE [Suspect]
     Active Substance: AZATHIOPRINE
     Dosage: 25 MILLIGRAM, ONCE A DAY, MORNING, LUNCH AND TEA TIME
     Route: 048
  17. AZATHIOPRINE [Suspect]
     Active Substance: AZATHIOPRINE
     Dosage: 75 MILLIGRAM, QD MORNING, LUNCH AND TEA TIME (WITH OR JUST AFTER FOOD/MEAL)
     Route: 048
  18. AZATHIOPRINE [Suspect]
     Active Substance: AZATHIOPRINE
     Dosage: 75 MILLIGRAM, DAILY,WITH OR JUST AFTER FOOD/ MORNING, LUNCH AND TEA TIME (WITH OR JUST AFTER FOOD/ME
     Route: 048
  19. OLANZAPINE [Suspect]
     Active Substance: OLANZAPINE
     Indication: Product used for unknown indication
     Dosage: 5 MG, QD
     Route: 048
  20. OLANZAPINE [Suspect]
     Active Substance: OLANZAPINE
     Dosage: 10 MILLIGRAM,DAILY
     Route: 048
  21. OLANZAPINE [Suspect]
     Active Substance: OLANZAPINE
     Dosage: 10 MILLIGRAM, QD PRN
     Route: 048
  22. OLANZAPINE [Suspect]
     Active Substance: OLANZAPINE
     Dosage: 10 MILLIGRAM, ONCE A DAY
     Route: 048
  23. OLANZAPINE [Suspect]
     Active Substance: OLANZAPINE
     Dosage: 10 MILLIGRAM, QD (10 UNK)10 MILLIGRAM, QD PRN
     Route: 048
  24. FOLIC ACID [Suspect]
     Active Substance: FOLIC ACID
     Indication: Folate deficiency
     Dosage: 5 MILLIGRAM, QD, ONCE A DAY, MORNING
     Route: 048
  25. FOLIC ACID [Suspect]
     Active Substance: FOLIC ACID
     Indication: Folate deficiency
     Dosage: UNK
  26. FOLIC ACID [Suspect]
     Active Substance: FOLIC ACID
     Dosage: 5 MILLIGRAM, DAILY, MORNING
     Route: 048
  27. FOLIC ACID [Suspect]
     Active Substance: FOLIC ACID
     Dosage: 5 MILLIGRAM, ONCE A DAY, MORNING
     Route: 048
  28. FOLIC ACID [Suspect]
     Active Substance: FOLIC ACID
     Dosage: 5 MILLIGRAM, QD,MORNING
     Route: 048
  29. DIHYDROCODEINE BITARTRATE [Suspect]
     Active Substance: DIHYDROCODEINE BITARTRATE
     Indication: Pain
     Dosage: FOUR TIMES DAILY.WITH OR JUST AFTER FOOD/MEAL
     Route: 048
  30. DIHYDROCODEINE BITARTRATE [Suspect]
     Active Substance: DIHYDROCODEINE BITARTRATE
     Dosage: 8 DOSAGE FORM, QD, 2 DOSAGE FORM, AS NECESSARY,TWO TO BE TAKEN FOUR TIMES A DAY IF REQUIRED. RECE
     Route: 048
  31. FERROUS FUMARATE [Suspect]
     Active Substance: FERROUS FUMARATE
     Indication: Anaemia
     Dosage: 840 MILLIGRAM, DAILY, MORNING AND NIGHT
     Route: 048
  32. FERROUS FUMARATE [Suspect]
     Active Substance: FERROUS FUMARATE
     Dosage: 210 MILLIGRAM, BID, (210 MG, Q12H, MORNING AND NIGHT)
     Route: 048
  33. FERROUS FUMARATE [Suspect]
     Active Substance: FERROUS FUMARATE
     Dosage: 210 MILLIGRAM, QD (210 MILLIGRAM, QD (MORNING AND NIGHT) 210 MILLIGRAM, TWO TIMES A DAY
     Route: 048
  34. FERROUS FUMARATE [Suspect]
     Active Substance: FERROUS FUMARATE
     Dosage: MORNING AND NIGHT
     Route: 048
  35. FERROUS FUMARATE [Suspect]
     Active Substance: FERROUS FUMARATE
     Dosage: 210 MILLIGRAM, QD MORNING AND NIGHT
     Route: 048
  36. FERROUS FUMARATE [Suspect]
     Active Substance: FERROUS FUMARATE
     Dosage: 210 MILLIGRAM, ONCE A DAY, MORNING AND NIGHT
     Route: 048
  37. FERROUS FUMARATE [Suspect]
     Active Substance: FERROUS FUMARATE
     Dosage: 420 MILLIGRAM, ONCE A DAY(MORNING AND NIGHT)
     Route: 048
  38. FERROUS FUMARATE [Suspect]
     Active Substance: FERROUS FUMARATE
     Dosage: 840 MILLIGRAM, QD (420 MILLIGRAM, DAILY,MORNING AND NIGHT
     Route: 048
  39. FERROUS FUMARATE [Suspect]
     Active Substance: FERROUS FUMARATE
     Dosage: 840 MILLIGRAM, QD, MORNING AND NIGHT;
     Route: 048
  40. FERROUS FUMARATE [Suspect]
     Active Substance: FERROUS FUMARATE
     Dosage: 210 MILLIGRAM, TWO TIMES A DAY
     Route: 048
  41. PROMETHAZINE HYDROCHLORIDE [Suspect]
     Active Substance: PROMETHAZINE HYDROCHLORIDE
     Indication: Product used for unknown indication
     Dosage: 25 MILLIGRAM, DAILY, AT NIGHT
     Route: 048
  42. PROMETHAZINE HYDROCHLORIDE [Suspect]
     Active Substance: PROMETHAZINE HYDROCHLORIDE
     Dosage: 25 MILLIGRAM, ONCE A DAY, AT NIGHT
     Route: 048
  43. PROMETHAZINE HYDROCHLORIDE [Suspect]
     Active Substance: PROMETHAZINE HYDROCHLORIDE
     Dosage: 25 MILLIGRAM, ONCE A DAY, AT NIGHT 25 MG, HS
     Route: 048
  44. IRON [Suspect]
     Active Substance: IRON
     Indication: Anaemia
     Dosage: 210 MILLIGRAM, BID
     Route: 048
  45. IRON [Suspect]
     Active Substance: IRON
     Dosage: 420 MILLIGRAM, QD, (210 MG, BID)
     Route: 048
  46. IRON [Suspect]
     Active Substance: IRON
     Dosage: 210 MILLIGRAM, BID (ADDITIONAL INFO: OVER DOSE)
     Route: 048
  47. DIHYDROCODEINE BITARTRATE [Suspect]
     Active Substance: DIHYDROCODEINE BITARTRATE
     Indication: Pain
     Dosage: 60 MILLIGRAM, QD (ONCE A DAY)
     Route: 048
  48. DIHYDROCODEINE BITARTRATE [Suspect]
     Active Substance: DIHYDROCODEINE BITARTRATE
     Dosage: 240 MILLIGRAM, QID (FOUR TIMES DAILY. WITH OR JUST AFTER FOOD/MEAL)
  49. DIHYDROCODEINE BITARTRATE [Suspect]
     Active Substance: DIHYDROCODEINE BITARTRATE
     Dosage: 8 DOSAGE FORM, QD, 2 DOSAGE FORM, AS NECESSARY,TWO TO BE TAKEN FOUR TIMES A DAY IF REQUIRED. RECE..
     Route: 048
  50. DIHYDROCODEINE BITARTRATE [Suspect]
     Active Substance: DIHYDROCODEINE BITARTRATE
     Dosage: 240 MILLIGRAM, QD (FOUR TIMES DAILY. WITH OR JUST AFTER FOOD/MEAL
     Route: 048
  51. DIHYDROCODEINE BITARTRATE [Suspect]
     Active Substance: DIHYDROCODEINE BITARTRATE
     Dosage: 60 MILLIGRAM, PRN FOUR TIMES A DAY. TAKE WITH OR JUST AFTER FOOD
     Route: 048
  52. DIHYDROCODEINE BITARTRATE [Suspect]
     Active Substance: DIHYDROCODEINE BITARTRATE
     Dosage: 2 DOSAGE FORM, PRN (DIHYDROCODEINE TARTRATE) (2 DOSAGE FORM, AS NECESSARY,TWO TO BE TAKEN FOUR TI.
     Route: 048
  53. DIHYDROCODEINE BITARTRATE [Suspect]
     Active Substance: DIHYDROCODEINE BITARTRATE
     Dosage: 60 MILLIGRAM, PRN (DIHYDROCODEINE TARTRATE), ONCE A DAY/ FOUR TIMES DAILY. WITH OR JUST AFTER FOOD
     Route: 048
  54. DIHYDROCODEINE BITARTRATE [Suspect]
     Active Substance: DIHYDROCODEINE BITARTRATE
     Dosage: FOUR TIMES A DAY. TAKE WITH OR JUST AFTER FOOD/MEAL
     Route: 048
  55. DIHYDROCODEINE BITARTRATE [Suspect]
     Active Substance: DIHYDROCODEINE BITARTRATE
     Dosage: 60 MILLIGRAM, QID, FOUR TIMES DAILY. WITH OR JUST AFTER FOOD/MEAL);
     Route: 048
  56. DIHYDROCODEINE BITARTRATE [Suspect]
     Active Substance: DIHYDROCODEINE BITARTRATE
     Dosage: 240 MILLIGRAM, QD (FOUR TIMES DAILY. WITH OR JUST AFTER FOOD/MEAL
     Route: 048
  57. DIHYDROCODEINE BITARTRATE [Suspect]
     Active Substance: DIHYDROCODEINE BITARTRATE
     Dosage: 240 MILLIGRAM, QD (FOUR TIMES DAILY. WITH OR JUST AFTER FOOD/MEAL
     Route: 048
  58. DIHYDROCODEINE BITARTRATE [Suspect]
     Active Substance: DIHYDROCODEINE BITARTRATE
     Dosage: 8 DOSAGE FORM, QD, 2 DOSAGE FORM, AS NECESSARY,TWO TO BE TAKEN FOUR TIMES A DAY IF REQUIRED. RECE..
     Route: 048
  59. DIHYDROCODEINE BITARTRATE [Suspect]
     Active Substance: DIHYDROCODEINE BITARTRATE
     Dosage: 2 DOSAGE FORM, PRN (DIHYDROCODEINE TARTRATE) (2 DOSAGE FORM, AS NECESSARY,TWO TO BE TAKEN FOUR TI.
     Route: 048
  60. ESCITALOPRAM [Suspect]
     Active Substance: ESCITALOPRAM OXALATE
     Indication: Product used for unknown indication
     Dosage: 10 MILLIGRAM, DAILY, MORNING
     Route: 048
  61. ESCITALOPRAM [Suspect]
     Active Substance: ESCITALOPRAM OXALATE
     Dosage: 10 MILLIGRAM, QD, EACH MORNING (INGREDIENT (ESCITALOPRAM OXALATE): 10MG)
     Route: 048
  62. DIHYDROCODEINE BITARTRATE [Suspect]
     Active Substance: DIHYDROCODEINE BITARTRATE
     Indication: Pain
     Dosage: 2 DF, Q6H, AS NECESSARY, TWO TO BE TAKEN 4 TIMES/DAY IF REQUIRED
     Route: 048
  63. DIHYDROCODEINE BITARTRATE [Suspect]
     Active Substance: DIHYDROCODEINE BITARTRATE
     Dosage: TWO TO BE TAKEN FOUR TIMES A DAY IF REQUIRED, AS NECESSARY
     Route: 048
  64. DIHYDROCODEINE BITARTRATE [Suspect]
     Active Substance: DIHYDROCODEINE BITARTRATE
     Dosage: 60 MILLIGRAM, QID (FOUR TIMES DAILY.WITH OR JUST AFTER FOOD/MEAL)
     Route: 048
  65. DIHYDROCODEINE BITARTRATE [Suspect]
     Active Substance: DIHYDROCODEINE BITARTRATE
     Dosage: 60 MG, Q6H TWO TO BE TAKEN FOUR TIMES A DAY IF REQUIRED
     Route: 048
  66. DIHYDROCODEINE BITARTRATE [Suspect]
     Active Substance: DIHYDROCODEINE BITARTRATE
     Dosage: 240 MILLIGRAM, Q6H, 240 MG,Q6H, FOUR TIMES DAILY. WITH OR JUST AFTER FOOD/MEAL60 MILLIGRAM, FOUR T
     Route: 048
  67. DIHYDROCODEINE BITARTRATE [Suspect]
     Active Substance: DIHYDROCODEINE BITARTRATE
     Dosage: 60 MILLIGRAM, FOUR TIMES DAILY.WITH OR JUST AFTER FOOD/MEAL, AS NECESSARY60 MG, PRN; AS NECESSARY
     Route: 048
  68. DIHYDROCODEINE BITARTRATE [Suspect]
     Active Substance: DIHYDROCODEINE BITARTRATE
     Dosage: 60 MILLIGRAM, ONCE A DAY/ FOUR TIMES DAILY. WITH OR JUST  AFTER FOOD/MEAL60 MG, Q6H TWO TO BE TAKEN
     Route: 048
  69. DIHYDROCODEINE BITARTRATE [Suspect]
     Active Substance: DIHYDROCODEINE BITARTRATE
     Dosage: FOUR TIMES DAILY. WITH OR JUST AFTER FOOD/MEAL60 MG, Q6H TWO TO BE TAKEN FOUR TIMES A DAY IF REQUIR
     Route: 048
  70. DIHYDROCODEINE BITARTRATE [Suspect]
     Active Substance: DIHYDROCODEINE BITARTRATE
     Dosage: TWO TO BE TAKEN FOUR TIMES A DAY IF REQUIRED, AS NECESSARY
     Route: 048
  71. DIHYDROCODEINE BITARTRATE [Suspect]
     Active Substance: DIHYDROCODEINE BITARTRATE
     Dosage: 2 DOSAGE FORM, AS NECESSARY, TWO TO BE TAKEN FOUR TIMES A DAY IF REQUIRED. RECEIVED 60 MG DOSE, 2DF,
     Route: 048
  72. DIHYDROCODEINE BITARTRATE [Suspect]
     Active Substance: DIHYDROCODEINE BITARTRATE
     Dosage: 240 MG, Q6H, FOUR TIMES DAILY. WITH OR JUST AFTER FOOD/MEAL
     Route: 048
  73. DIHYDROCODEINE BITARTRATE [Suspect]
     Active Substance: DIHYDROCODEINE BITARTRATE
     Dosage: UNK
  74. DIHYDROCODEINE BITARTRATE [Suspect]
     Active Substance: DIHYDROCODEINE BITARTRATE
     Dosage: 60 MILLIGRAM, FOUR TIMES DAILY.
     Route: 048
  75. DIHYDROCODEINE BITARTRATE [Suspect]
     Active Substance: DIHYDROCODEINE BITARTRATE
     Dosage: FOUR TIMES DAILY. WITH OR JUST AFTER FOOD/MEAL60 MG, Q6H TWO TO BE TAKEN FOUR TIMES A DAY IF REQUIR
     Route: 048
  76. PROMETHAZINE [Suspect]
     Active Substance: PROMETHAZINE HYDROCHLORIDE
     Indication: Product used for unknown indication
     Dosage: 25 MILLIGRAM, QD, AT NIGHT
     Route: 048

REACTIONS (3)
  - Seizure [Unknown]
  - Autoscopy [Unknown]
  - Overdose [Unknown]
